FAERS Safety Report 9687323 (Version 2)
Quarter: 2013Q4

REPORT INFORMATION
  Report Type: Spontaneous
  Country: US (occurrence: US)
  Receive Date: 20131114
  Receipt Date: 20131126
  Transmission Date: 20140711
  Serious: Yes (Other)
  Sender: FDA-Public Use
  Company Number: US-BIOGENIDEC-2013BI106992

PATIENT
  Age: 27 Year
  Sex: Female

DRUGS (7)
  1. TYSABRI [Suspect]
     Indication: MULTIPLE SCLEROSIS
     Route: 042
     Dates: start: 20130305
  2. VERAPAMIL [Concomitant]
  3. LORATADINE [Concomitant]
  4. FLUTICASONE [Concomitant]
  5. ZOLOFT [Concomitant]
  6. VITAMIN B12 [Concomitant]
  7. VITAMIN D [Concomitant]

REACTIONS (3)
  - Nasopharyngitis [Recovered/Resolved]
  - Weight increased [Not Recovered/Not Resolved]
  - Abortion spontaneous [Unknown]
